FAERS Safety Report 18269280 (Version 1)
Quarter: 2020Q3

REPORT INFORMATION
  Report Type: Spontaneous
  Country: FR (occurrence: FR)
  Receive Date: 20200915
  Receipt Date: 20200915
  Transmission Date: 20201103
  Serious: Yes (Death, Other)
  Sender: FDA-Public Use
  Company Number: FR-JAZZ-2020-FR-004067

PATIENT

DRUGS (12)
  1. CELLCEPT [Interacting]
     Active Substance: MYCOPHENOLATE MOFETIL\MYCOPHENOLATE MOFETIL HYDROCHLORIDE
     Dosage: 2 GRAM
     Route: 048
     Dates: start: 20190610, end: 20190702
  2. CYTARABINE. [Interacting]
     Active Substance: CYTARABINE
     Indication: ACUTE LYMPHOCYTIC LEUKAEMIA
     Dosage: UNK
     Route: 037
     Dates: start: 20181111, end: 20190510
  3. CELLCEPT [Interacting]
     Active Substance: MYCOPHENOLATE MOFETIL\MYCOPHENOLATE MOFETIL HYDROCHLORIDE
     Indication: PROPHYLAXIS AGAINST TRANSPLANT REJECTION
     Dosage: 500 MILLIGRAM
     Route: 041
     Dates: start: 20190527, end: 20190610
  4. NEORAL [Interacting]
     Active Substance: CYCLOSPORINE
     Indication: PROPHYLAXIS AGAINST TRANSPLANT REJECTION
     Dosage: UNK
     Route: 048
     Dates: start: 20190610, end: 20190702
  5. FLUDARABINE TEVA [Interacting]
     Active Substance: FLUDARABINE PHOSPHATE
     Indication: ACUTE LYMPHOCYTIC LEUKAEMIA
     Dosage: 60 MILLIGRAM
     Route: 041
     Dates: start: 20190524, end: 20190527
  6. BLINCYTO [Interacting]
     Active Substance: BLINATUMOMAB
     Indication: ACUTE LEUKAEMIA
     Dosage: UNKNOWN DOSE
     Route: 041
     Dates: start: 20190318, end: 20190521
  7. SANDIMMUN [Interacting]
     Active Substance: CYCLOSPORINE
     Indication: PROPHYLAXIS AGAINST TRANSPLANT REJECTION
     Dosage: 50 MG/ML,
     Route: 041
  8. VINCRISTINE [Interacting]
     Active Substance: VINCRISTINE
     Indication: ACUTE LYMPHOCYTIC LEUKAEMIA
     Dosage: UNK
     Route: 041
     Dates: start: 20181112, end: 20190311
  9. METHOTREXATE. [Interacting]
     Active Substance: METHOTREXATE
     Indication: ACUTE LYMPHOCYTIC LEUKAEMIA
     Dosage: UNK
     Route: 037
     Dates: start: 20181108, end: 20190510
  10. METHOTREXATE. [Interacting]
     Active Substance: METHOTREXATE
     Dosage: 2 GRAM
     Route: 041
     Dates: start: 20190110, end: 20190110
  11. KIDROLASE [Suspect]
     Active Substance: ASPARAGINASE
     Indication: ACUTE LYMPHOCYTIC LEUKAEMIA
     Dosage: 20000 INTERNATIONAL UNIT
     Route: 041
     Dates: start: 20190111, end: 20190111
  12. METHYLPREDNISOLONE MYLAN [METHYLPREDNISOLONE HEMISUCCINATE] [Interacting]
     Active Substance: METHYLPREDNISOLONE HEMISUCCINATE
     Indication: ACUTE LYMPHOCYTIC LEUKAEMIA
     Dosage: UNK
     Route: 037
     Dates: start: 20181111, end: 20190510

REACTIONS (7)
  - Somnolence [Fatal]
  - Leukoencephalopathy [Fatal]
  - Quadriplegia [Fatal]
  - Mutism [Fatal]
  - Meningitis aseptic [Fatal]
  - Hypoaesthesia [Fatal]
  - Neuralgia [Fatal]

NARRATIVE: CASE EVENT DATE: 20190626
